FAERS Safety Report 25455954 (Version 1)
Quarter: 2025Q2

REPORT INFORMATION
  Report Type: Report from Study
  Country: US (occurrence: US)
  Receive Date: 20250619
  Receipt Date: 20250619
  Transmission Date: 20250716
  Serious: Yes (Other)
  Sender: TAKEDA
  Company Number: US-TAKEDA-2025TUS047044

PATIENT
  Age: 57 Year
  Sex: Female

DRUGS (1)
  1. LANADELUMAB [Suspect]
     Active Substance: LANADELUMAB
     Indication: Hereditary angioedema
     Dosage: 2 MILLILITER, Q2WEEKS

REACTIONS (5)
  - Rectal haemorrhage [Unknown]
  - Gastrointestinal pain [Unknown]
  - Visual impairment [Unknown]
  - Hereditary angioedema [Unknown]
  - Headache [Unknown]

NARRATIVE: CASE EVENT DATE: 20250516
